FAERS Safety Report 20230746 (Version 2)
Quarter: 2022Q1

REPORT INFORMATION
  Report Type: Spontaneous
  Country: US (occurrence: US)
  Receive Date: 20211227
  Receipt Date: 20220208
  Transmission Date: 20220423
  Serious: Yes (Other)
  Sender: FDA-Public Use
  Company Number: US-ORGANON-O2112USA002127

PATIENT
  Age: 21 Year
  Sex: Female

DRUGS (1)
  1. NEXPLANON [Suspect]
     Active Substance: ETONOGESTREL
     Indication: Contraception
     Dosage: 1 IMPLANT, ONE EVERY THREE YEARS
     Route: 059
     Dates: start: 20211129

REACTIONS (6)
  - Device expulsion [Not Recovered/Not Resolved]
  - Implant site erythema [Unknown]
  - Implant site swelling [Unknown]
  - Implant site infection [Unknown]
  - Implant site inflammation [Unknown]
  - Implant site irritation [Unknown]

NARRATIVE: CASE EVENT DATE: 20211129
